FAERS Safety Report 9779925 (Version 7)
Quarter: 2014Q2

REPORT INFORMATION
  Report Type: Spontaneous
  Country: US (occurrence: US)
  Receive Date: 20131223
  Receipt Date: 20140422
  Transmission Date: 20141212
  Serious: Yes (Other)
  Sender: FDA-Public Use
  Company Number: US-GILEAD-2013-0090382

PATIENT
  Sex: Female

DRUGS (5)
  1. LETAIRIS [Suspect]
     Indication: PULMONARY HYPERTENSION
     Dosage: 5 MG, UNK
     Route: 065
     Dates: start: 20130919
  2. LETAIRIS [Suspect]
     Indication: SCLERODERMA
  3. LETAIRIS [Suspect]
     Indication: HYPOXIA
  4. TYVASO [Concomitant]
  5. ADCIRCA [Concomitant]

REACTIONS (12)
  - Deafness [Unknown]
  - Cerumen impaction [Unknown]
  - Middle ear effusion [Unknown]
  - Epistaxis [Unknown]
  - Ear discomfort [Unknown]
  - Hearing impaired [Unknown]
  - Arthritis [Unknown]
  - Ear disorder [Unknown]
  - Nasal disorder [Unknown]
  - Pharyngeal disorder [Unknown]
  - Nasopharyngitis [Unknown]
  - Nasal congestion [Unknown]
